FAERS Safety Report 11060394 (Version 10)
Quarter: 2016Q4

REPORT INFORMATION
  Report Type: Report from Study
  Country: US (occurrence: US)
  Receive Date: 20150423
  Receipt Date: 20161110
  Transmission Date: 20170206
  Serious: Yes (Other)
  Sender: FDA-Public Use
  Company Number: US-UCBSA-2015000971

PATIENT
  Age: 65 Year
  Sex: Female

DRUGS (3)
  1. CERTOLIZUMAB PEGOL [Suspect]
     Active Substance: CERTOLIZUMAB PEGOL
     Dosage: 400 MG, EV 4 WEEKS
     Dates: start: 2016, end: 20160620
  2. CERTOLIZUMAB PEGOL [Suspect]
     Active Substance: CERTOLIZUMAB PEGOL
     Indication: RHEUMATOID ARTHRITIS
     Dosage: 400 MG, EV 4 WEEKS (EXPIRY DATE: JUL-2017, OCT-2017, MAY-2018) (NDC# 50474-70062) (LOT # 310015)
     Dates: start: 20110924, end: 20160108
  3. CORTISONE [Concomitant]
     Active Substance: CORTISONE\HYDROCORTISONE
     Indication: SCIATICA
     Dosage: UNK

REACTIONS (12)
  - Bacterial vaginosis [Not Recovered/Not Resolved]
  - Diarrhoea [Not Recovered/Not Resolved]
  - Food poisoning [Not Recovered/Not Resolved]
  - Vaginal haemorrhage [Not Recovered/Not Resolved]
  - Vaginal prolapse [Not Recovered/Not Resolved]
  - Dehydration [Not Recovered/Not Resolved]
  - Thyroid mass [Not Recovered/Not Resolved]
  - Malaise [Not Recovered/Not Resolved]
  - Lung disorder [Not Recovered/Not Resolved]
  - Arthritis [Not Recovered/Not Resolved]
  - Oral infection [Not Recovered/Not Resolved]
  - Sciatica [Not Recovered/Not Resolved]

NARRATIVE: CASE EVENT DATE: 20150107
